FAERS Safety Report 23839750 (Version 6)
Quarter: 2025Q1

REPORT INFORMATION
  Report Type: Report from Study
  Country: CA (occurrence: CA)
  Receive Date: 20240510
  Receipt Date: 20250112
  Transmission Date: 20250408
  Serious: Yes (Hospitalization, Other)
  Sender: JOHNSON AND JOHNSON
  Company Number: CA-JNJFOC-20240429045

PATIENT
  Age: 49 Year
  Sex: Female

DRUGS (4)
  1. REMICADE [Suspect]
     Active Substance: INFLIXIMAB
     Indication: Crohn^s disease
     Route: 041
  2. REMICADE [Suspect]
     Active Substance: INFLIXIMAB
     Route: 041
     Dates: start: 20200811
  3. REMICADE [Suspect]
     Active Substance: INFLIXIMAB
     Route: 041
  4. REMICADE [Suspect]
     Active Substance: INFLIXIMAB
     Route: 041

REACTIONS (8)
  - Small intestinal resection [Recovering/Resolving]
  - Cholelithiasis [Recovering/Resolving]
  - Intestinal obstruction [Recovering/Resolving]
  - Cholecystitis infective [Recovered/Resolved]
  - Off label use [Unknown]
  - Muscle spasms [Not Recovered/Not Resolved]
  - Postoperative wound infection [Recovered/Resolved]
  - Gastric infection [Recovered/Resolved]

NARRATIVE: CASE EVENT DATE: 20200811
